FAERS Safety Report 13381485 (Version 1)
Quarter: 2017Q1

REPORT INFORMATION
  Report Type: Spontaneous
  Country: CN (occurrence: CN)
  Receive Date: 20170329
  Receipt Date: 20170329
  Transmission Date: 20170429
  Serious: Yes (Life-Threatening, Hospitalization, Other)
  Sender: FDA-Public Use
  Company Number: CN-SUN PHARMACEUTICAL INDUSTRIES LTD-2017RR-136211

PATIENT
  Age: 65 Year
  Sex: Female

DRUGS (8)
  1. BORTEZOMIB [Suspect]
     Active Substance: BORTEZOMIB
     Indication: PLASMA CELL MYELOMA
     Dosage: 2 MG, 2 CYCLES
     Route: 065
     Dates: start: 20101105
  2. VINCRISTINE [Suspect]
     Active Substance: VINCRISTINE
     Indication: PLASMA CELL MYELOMA
     Dosage: 0.5 MG, 2 CYLCES, FROM DAY 1 TO DAY 4
     Route: 065
     Dates: start: 2009
  3. DEXAMETHASONE. [Suspect]
     Active Substance: DEXAMETHASONE
     Indication: PLASMA CELL MYELOMA
     Dosage: 20 MG, 2 CYCLES, ON DAYS 1, 2, 4, 5, 7, 8, 11 AND 12
     Route: 065
     Dates: start: 20101105
  4. PIRARUBICIN [Suspect]
     Active Substance: PIRARUBICIN
     Indication: PLASMA CELL MYELOMA
     Dosage: 10 MG, 2 CYCLES, FROM DAY 1 TO DAY 4
     Route: 065
     Dates: start: 2009
  5. THALIDOMIDE [Suspect]
     Active Substance: THALIDOMIDE
     Indication: PLASMA CELL MYELOMA
     Dosage: 200 MG, DAILY
     Route: 065
     Dates: start: 20100201, end: 20121013
  6. DEXAMETHASONE. [Suspect]
     Active Substance: DEXAMETHASONE
     Dosage: 20 MG, FROM DAY 1 TO DAY 4
     Route: 065
     Dates: start: 2009
  7. LENALIDOMIDE [Concomitant]
     Active Substance: LENALIDOMIDE
     Indication: PLASMA CELL MYELOMA
     Dosage: 10 MG, DAILY
     Route: 065
     Dates: start: 20090911
  8. MELPHALAN [Suspect]
     Active Substance: MELPHALAN
     Indication: PLASMA CELL MYELOMA
     Dosage: 12 MG, 2 CYCLES, FROM DAY 1 TO DAY 4
     Route: 065
     Dates: start: 2009

REACTIONS (1)
  - Acute lymphocytic leukaemia [Unknown]
